FAERS Safety Report 16925154 (Version 1)
Quarter: 2019Q4

REPORT INFORMATION
  Report Type: Spontaneous
  Country: BE (occurrence: BE)
  Receive Date: 20191016
  Receipt Date: 20191016
  Transmission Date: 20200122
  Serious: Yes (Other)
  Sender: FDA-Public Use
  Company Number: BE-ASTRAZENECA-2019SF45704

PATIENT
  Sex: Female

DRUGS (1)
  1. NEXIAM [Suspect]
     Active Substance: ESOMEPRAZOLE
     Dosage: 40.0MG UNKNOWN
     Route: 048

REACTIONS (2)
  - Malignant dysphagia [Unknown]
  - Throat cancer [Unknown]
